FAERS Safety Report 6207322-2 (Version None)
Quarter: 2009Q2

REPORT INFORMATION
  Report Type: 
  Country: None (occurrence: None)
  Receive Date: 20090526
  Receipt Date: 20090513
  Transmission Date: 20091009
  Serious: No
  Sender: FDA-Public Use
  Company Number: 20096814

PATIENT
  Sex: Female

DRUGS (1)
  1. LIORESAL [Suspect]
     Indication: MUSCLE SPASTICITY
     Dosage: 370 MCG, DAILY, INTRATHECAL
     Route: 037

REACTIONS (3)
  - FACIAL SPASM [None]
  - INDWELLING CATHETER MANAGEMENT [None]
  - SWELLING [None]
